FAERS Safety Report 14929660 (Version 1)
Quarter: 2018Q2

REPORT INFORMATION
  Report Type: Report from Study
  Country: PH (occurrence: PH)
  Receive Date: 20180523
  Receipt Date: 20180523
  Transmission Date: 20180711
  Serious: Yes (Hospitalization)
  Sender: FDA-Public Use
  Company Number: PH-PFIZER INC-2018205669

PATIENT
  Age: 56 Year
  Sex: Male

DRUGS (4)
  1. ALDACTONE [Suspect]
     Active Substance: SPIRONOLACTONE
     Indication: DIURETIC THERAPY
     Dosage: UNK
  2. AMINOLEBAN EN [Suspect]
     Active Substance: UNSPECIFIED INGREDIENT
     Indication: HEPATIC CIRRHOSIS
     Dosage: UNK, 2X/DAY
  3. AMINOLEBAN EN [Suspect]
     Active Substance: UNSPECIFIED INGREDIENT
     Dosage: 1 DF, 1X/DAY (1 SACHET A DAY)
  4. LACTULOSE. [Suspect]
     Active Substance: LACTULOSE
     Indication: ABNORMAL FAECES
     Dosage: UNK

REACTIONS (4)
  - Mental status changes [Unknown]
  - Inappropriate schedule of drug administration [Unknown]
  - Weight increased [Unknown]
  - Abnormal behaviour [Unknown]

NARRATIVE: CASE EVENT DATE: 201611
